FAERS Safety Report 5338320-9 (Version None)
Quarter: 2007Q2

REPORT INFORMATION
  Report Type: 
  Country: None (occurrence: None)
  Receive Date: 20070405
  Receipt Date: 20061113
  Transmission Date: 20071010
  Serious: No
  Sender: FDA-Public Use
  Company Number: US200611002384

PATIENT
  Age: 80 Year
  Sex: Female

DRUGS (5)
  1. CYMBALTA [Suspect]
     Indication: DEPRESSION
     Dosage: 30 MG, ORAL
     Route: 048
  2. LIPITOR [Concomitant]
  3. LEVOTHYROXINE SODIUM [Concomitant]
  4. HYDROCODONE (HYDROCODONE) [Concomitant]
  5. NEXIUM /UNK/ (ESOMEPRAZOLE) [Concomitant]

REACTIONS (4)
  - CIRCADIAN RHYTHM SLEEP DISORDER [None]
  - DEPRESSED MOOD [None]
  - SOMNOLENCE [None]
  - WRIST SURGERY [None]
